FAERS Safety Report 7022344-X (Version None)
Quarter: 2010Q3

REPORT INFORMATION
  Report Type: 
  Country: None (occurrence: None)
  Receive Date: 20100930
  Receipt Date: 20100920
  Transmission Date: 20110219
  Serious: Yes (Other)
  Sender: FDA-Public Use
  Company Number: US-SANOFI-AVENTIS-2010SA049941

PATIENT
  Age: 73 Year
  Sex: Female
  Weight: 59 kg

DRUGS (19)
  1. MULTAQ [Suspect]
     Indication: ATRIAL FIBRILLATION
     Route: 048
     Dates: start: 20090901
  2. METOPROLOL TARTRATE [Concomitant]
     Indication: CARDIAC DISORDER
  3. RAMIPRIL [Concomitant]
     Indication: CARDIAC DISORDER
  4. HYDROCHLOROTHIAZIDE [Concomitant]
  5. WARFARIN SODIUM [Concomitant]
     Indication: ATRIAL FIBRILLATION
  6. SYNTHROID [Concomitant]
     Indication: HYPOTHYROIDISM
     Dates: start: 19700101
  7. VITAMIN B-12 [Concomitant]
  8. CLARITHROMYCIN [Concomitant]
  9. DOXYCYCLINE [Concomitant]
  10. ZETIA [Concomitant]
     Route: 065
  11. ACTONEL [Concomitant]
     Indication: BONE DISORDER
  12. ASPIRIN [Concomitant]
  13. VITAMIN B6 [Concomitant]
  14. VITAMIN D [Concomitant]
  15. VITAMIN A [Concomitant]
  16. FOLIC ACID [Concomitant]
  17. MULTI-VITAMINS [Concomitant]
  18. CITRACAL [Concomitant]
  19. LOVAZA [Concomitant]

REACTIONS (6)
  - ACCIDENTAL OVERDOSE [None]
  - ATRIAL FIBRILLATION [None]
  - CHOKING SENSATION [None]
  - HEADACHE [None]
  - HEART RATE INCREASED [None]
  - OFF LABEL USE [None]
